FAERS Safety Report 13371043 (Version 4)
Quarter: 2018Q2

REPORT INFORMATION
  Report Type: Spontaneous
  Country: AU (occurrence: AU)
  Receive Date: 20170324
  Receipt Date: 20180416
  Transmission Date: 20180711
  Serious: Yes (Death, Other)
  Sender: FDA-Public Use
  Company Number: AU-MYLANLABS-2017M1018398

PATIENT
  Age: 79 Year
  Sex: Male
  Weight: 98 kg

DRUGS (1)
  1. EPIPEN [Suspect]
     Active Substance: EPINEPHRINE
     Indication: ALLERGY TO ARTHROPOD BITE
     Dosage: 2 DF, UNK
     Dates: start: 20170221

REACTIONS (3)
  - Anaphylactic reaction [Fatal]
  - Myocardial infarction [Unknown]
  - Product use issue [Unknown]

NARRATIVE: CASE EVENT DATE: 20170221
